FAERS Safety Report 10271115 (Version 3)
Quarter: 2014Q3

REPORT INFORMATION
  Report Type: Spontaneous
  Country: US (occurrence: US)
  Receive Date: 20140701
  Receipt Date: 20140917
  Transmission Date: 20150326
  Serious: Yes (Death, Hospitalization, Disabling, Other)
  Sender: FDA-Public Use
  Company Number: US-009507513-2010SP034645

PATIENT
  Sex: Female
  Weight: 52.62 kg

DRUGS (7)
  1. RETIN-A [Concomitant]
     Active Substance: TRETINOIN
     Dosage: 0.025 %, HS
     Route: 061
  2. TRIAMCINOLONE [Concomitant]
     Active Substance: TRIAMCINOLONE
     Dosage: 2 WEEKS ON, 1 WEEK OFF
     Route: 061
  3. DOXYCYCLINE HYCLATE. [Concomitant]
     Active Substance: DOXYCYCLINE HYCLATE
     Dosage: 100 MG, QD
  4. CLEOCIN CAPSULES [Concomitant]
     Dosage: 1 %, BID
     Route: 061
  5. NUVARING [Suspect]
     Active Substance: ETHINYL ESTRADIOL\ETONOGESTREL
     Indication: MUSCLE SPASMS
     Dosage: UNK
     Route: 067
     Dates: start: 200801, end: 20080620
  6. NUVARING [Suspect]
     Active Substance: ETHINYL ESTRADIOL\ETONOGESTREL
     Indication: ENDOMETRIOSIS
  7. KETOCONAZOLE. [Concomitant]
     Active Substance: KETOCONAZOLE
     Dosage: SHAMPOO
     Route: 061

REACTIONS (23)
  - Cerebrospinal fluid leakage [Unknown]
  - Migraine [Unknown]
  - Brain oedema [Unknown]
  - Brain abscess [Fatal]
  - Pseudomonas infection [Unknown]
  - Deep vein thrombosis [Recovered/Resolved]
  - Cerebral haemorrhage [Not Recovered/Not Resolved]
  - Tachycardia [Unknown]
  - Subarachnoid haemorrhage [Not Recovered/Not Resolved]
  - Incorrect drug administration duration [Unknown]
  - Craniectomy [Unknown]
  - Bronchopneumonia [Fatal]
  - Vaginal haemorrhage [Unknown]
  - Cerebral haematoma [Unknown]
  - Bacterial infection [Unknown]
  - Off label use [Unknown]
  - Intracerebral haematoma evacuation [Unknown]
  - Arteriovenous shunt operation [Unknown]
  - Peritoneal abscess [Fatal]
  - Intracranial venous sinus thrombosis [Fatal]
  - Hypoxic-ischaemic encephalopathy [Fatal]
  - Pharyngeal abscess [Fatal]
  - Paralysis [Unknown]

NARRATIVE: CASE EVENT DATE: 200806
